FAERS Safety Report 18123624 (Version 1)
Quarter: 2020Q3

REPORT INFORMATION
  Report Type: Spontaneous
  Country: US (occurrence: US)
  Receive Date: 20200807
  Receipt Date: 20200807
  Transmission Date: 20201103
  Serious: Yes (Other)
  Sender: FDA-Public Use
  Company Number: US-ASTRAZENECA-2020SE95710

PATIENT
  Age: 19390 Day
  Sex: Male
  Weight: 115.2 kg

DRUGS (34)
  1. FARXIGA [Suspect]
     Active Substance: DAPAGLIFLOZIN PROPANEDIOL
     Indication: TYPE 2 DIABETES MELLITUS
     Route: 048
     Dates: start: 20171212
  2. NITROGLYCERIN. [Concomitant]
     Active Substance: NITROGLYCERIN
  3. TRULICITY [Concomitant]
     Active Substance: DULAGLUTIDE
  4. HEPARIN [Concomitant]
     Active Substance: HEPARIN SODIUM
  5. FARXIGA [Suspect]
     Active Substance: DAPAGLIFLOZIN PROPANEDIOL
     Indication: TYPE 2 DIABETES MELLITUS
     Dosage: GENERIC
     Route: 048
     Dates: start: 20180320
  6. CINNAMON. [Concomitant]
     Active Substance: CINNAMON
  7. PLAVIX [Concomitant]
     Active Substance: CLOPIDOGREL BISULFATE
  8. TYLENOL [Concomitant]
     Active Substance: ACETAMINOPHEN
  9. MYLANTA [Concomitant]
     Active Substance: ALUMINUM HYDROXIDE\DIMETHICONE\MAGNESIUM HYDROXIDE
  10. GLUCAGON. [Concomitant]
     Active Substance: GLUCAGON
  11. HEPARIN [Concomitant]
     Active Substance: HEPARIN SODIUM
  12. LIPITOR [Concomitant]
     Active Substance: ATORVASTATIN CALCIUM
  13. COREG [Concomitant]
     Active Substance: CARVEDILOL
  14. BUMEX [Concomitant]
     Active Substance: BUMETANIDE
  15. LIDOCAINE. [Concomitant]
     Active Substance: LIDOCAINE
  16. VANCOMYCIN [Concomitant]
     Active Substance: VANCOMYCIN
  17. CLONIDINE. [Concomitant]
     Active Substance: CLONIDINE
  18. MIDAZOLAM. [Concomitant]
     Active Substance: MIDAZOLAM
  19. HYDROCHLOROTHIAZIDE. [Concomitant]
     Active Substance: HYDROCHLOROTHIAZIDE
  20. VITAMIN B [Concomitant]
     Active Substance: VITAMIN B
  21. DEXTROSE. [Concomitant]
     Active Substance: DEXTROSE
  22. FENTANYL. [Concomitant]
     Active Substance: FENTANYL
  23. PACERONE [Concomitant]
     Active Substance: AMIODARONE HYDROCHLORIDE
  24. HYDROCODONE [Concomitant]
     Active Substance: HYDROCODONE
  25. ASPIRIN. [Concomitant]
     Active Substance: ASPIRIN
  26. CARDIZEM [Concomitant]
     Active Substance: DILTIAZEM HYDROCHLORIDE
  27. ZOLPIDEM [Concomitant]
     Active Substance: ZOLPIDEM TARTRATE
  28. INSULIN [Concomitant]
     Active Substance: INSULIN NOS
  29. LISINOPRIL. [Concomitant]
     Active Substance: LISINOPRIL
  30. JANUVIA [Concomitant]
     Active Substance: SITAGLIPTIN PHOSPHATE
  31. FOLVITE [Concomitant]
     Active Substance: FOLIC ACID
  32. ELIQUIS [Concomitant]
     Active Substance: APIXABAN
  33. CLEOCIN [Concomitant]
     Active Substance: CLINDAMYCIN PHOSPHATE
  34. SODIUM BICARBONATE. [Concomitant]
     Active Substance: SODIUM BICARBONATE

REACTIONS (16)
  - Arteriosclerosis [Unknown]
  - Colon cancer [Unknown]
  - Respiratory failure [Unknown]
  - Hypertension [Unknown]
  - Wound infection [Unknown]
  - Chronic kidney disease [Unknown]
  - Scrotal abscess [Unknown]
  - Actinic keratosis [Unknown]
  - Necrotising fasciitis [Unknown]
  - Fournier^s gangrene [Unknown]
  - Hypoglycaemia [Unknown]
  - Cardiac failure congestive [Unknown]
  - Perineal abscess [Unknown]
  - Gangrene [Unknown]
  - Chapped lips [Unknown]
  - Acute kidney injury [Unknown]

NARRATIVE: CASE EVENT DATE: 20171212
